FAERS Safety Report 8438457-1 (Version None)
Quarter: 2012Q2

REPORT INFORMATION
  Report Type: 
  Country: None (occurrence: None)
  Receive Date: 20120615
  Receipt Date: 20120612
  Transmission Date: 20120825
  Serious: Yes (Death, Hospitalization)
  Sender: FDA-Public Use
  Company Number: SE-AMGEN-SWESP2012029953

PATIENT
  Age: 76 Year
  Sex: Female
  Weight: 59 kg

DRUGS (4)
  1. IMDUR [Concomitant]
     Indication: ANGINA PECTORIS
     Dosage: 1 DF, UNK
     Route: 048
  2. FUROSEMIDE [Concomitant]
     Indication: ANGINA PECTORIS
     Dosage: 1 DF, UNK
     Route: 048
  3. PROLIA [Suspect]
     Indication: OSTEOPOROTIC FRACTURE
     Dosage: 60 MG, UNK
     Route: 058
     Dates: start: 20120127
  4. ASPIRIN [Concomitant]
     Indication: ANGINA PECTORIS
     Dosage: 1 UNK, UNK
     Route: 048

REACTIONS (5)
  - PLEURAL EFFUSION [None]
  - MYOCARDIAL INFARCTION [None]
  - TACHYCARDIA [None]
  - DYSPNOEA [None]
  - PNEUMONIA [None]
